FAERS Safety Report 22675409 (Version 2)
Quarter: 2024Q1

REPORT INFORMATION
  Report Type: Other
  Country: ES (occurrence: ES)
  Receive Date: 20230706
  Receipt Date: 20240119
  Transmission Date: 20240410
  Serious: Yes (Other)
  Sender: FDA-Public Use
  Company Number: None

PATIENT
  Age: 62 Year
  Sex: Female
  Weight: 90 kg

DRUGS (38)
  1. METFORMIN [Suspect]
     Active Substance: METFORMIN HYDROCHLORIDE
     Indication: Diabetes mellitus
     Dosage: 2000 MILLIGRAM DAILY;
     Route: 065
     Dates: start: 2010
  2. METFORMIN [Suspect]
     Active Substance: METFORMIN HYDROCHLORIDE
     Dosage: 1.05 MILLIGRAM DAILY;
     Route: 065
  3. PRAMIPEXOLE [Suspect]
     Active Substance: PRAMIPEXOLE\PRAMIPEXOLE DIHYDROCHLORIDE
     Indication: Parkinsonism
     Dosage: 1.05 MG , 1-0-0-0
     Route: 065
  4. PRAMIPEXOLE [Suspect]
     Active Substance: PRAMIPEXOLE\PRAMIPEXOLE DIHYDROCHLORIDE
     Indication: Tremor
     Dosage: 1.05 MG , 1-0-0-0
     Route: 065
  5. ALPRAZOLAM [Interacting]
     Active Substance: ALPRAZOLAM
     Indication: Personality disorder
     Dosage: 0.5 MG 0-0-1-0-0
     Route: 065
  6. GABAPENTIN [Interacting]
     Active Substance: GABAPENTIN
     Indication: Arthralgia
     Dosage: 300 MILLIGRAM, 3 TIMES A DAY (1-1-1-0)
     Route: 065
     Dates: start: 2019
  7. QUETIAPINE [Interacting]
     Active Substance: QUETIAPINE
     Indication: Personality disorder
     Dosage: .5 MILLIGRAM DAILY;
     Route: 065
  8. QUETIAPINE [Interacting]
     Active Substance: QUETIAPINE
     Dosage: 400 MILLIGRAM DAILY;
     Route: 065
  9. LORMETAZEPAM [Interacting]
     Active Substance: LORMETAZEPAM
     Indication: Personality disorder
     Dosage: 2 MG; PRESCRIBED REGIMEN: 0-0-0-1; USED REGIMEN: 0-0-0-1-1
     Route: 065
  10. LORMETAZEPAM [Interacting]
     Active Substance: LORMETAZEPAM
     Dosage: 2 MG; PRESCRIBED REGIMEN: 0-0-0-1; USED REGIMEN: 0-0-0-1-1
     Route: 065
  11. MANIDIPINE [Interacting]
     Active Substance: MANIDIPINE
     Indication: Hypertension
     Dosage: 20 MILLIGRAM DAILY;10 MILLIGRAM (0-0-2-0)
     Route: 065
     Dates: start: 2014
  12. FUROSEMIDE [Interacting]
     Active Substance: FUROSEMIDE
     Indication: Hypertension
     Dosage: 40 MILLIGRAM (1-0.5-0-0)
     Route: 065
     Dates: start: 2014
  13. FUROSEMIDE [Interacting]
     Active Substance: FUROSEMIDE
     Indication: Hypertension
     Dosage: 1.5 MILLIGRAM PER DAY
  14. PIMOZIDE [Interacting]
     Active Substance: PIMOZIDE
     Indication: Personality disorder
     Dosage: 1 MG; DOSAGE PRESCRIBED: 0-0-1-0; DOSAGE USED: 0-0-1-0-0
     Route: 065
  15. KETAZOLAM [Interacting]
     Active Substance: KETAZOLAM
     Indication: Hallucination
     Dosage: 15 MG PRESCRIPTION DOSAGE: 0-0-0-1; USED DOSAGE: 0-0-0-0-1
     Route: 065
     Dates: start: 2016
  16. VALSARTAN [Concomitant]
     Active Substance: VALSARTAN
     Indication: Hypertension
     Dosage: USED DOSAGE OF 1-0-0-0
     Route: 065
     Dates: start: 2014
  17. ALBUTEROL [Concomitant]
     Active Substance: ALBUTEROL
     Indication: Chronic obstructive pulmonary disease
     Dosage: 100 MCG/IN. DOSAGE PRESCRIBED: ON-DEMAND; DOSAGE USED: ON-DEMAND
     Route: 065
     Dates: start: 2016
  18. AMISULPRIDE [Concomitant]
     Active Substance: AMISULPRIDE
     Indication: Personality disorder
     Dosage: 100 MG; PRESCRIPTION: 0-0-0-0-0.5; USED PATTERN: 0-0-0-0-0.5
     Route: 065
  19. AMISULPRIDE [Concomitant]
     Active Substance: AMISULPRIDE
     Dosage: (0-0-0-0.5)
  20. CALCIFEDIOL [Concomitant]
     Active Substance: CALCIFEDIOL
     Indication: Vitamin D deficiency
     Dosage: .0089 MILLIGRAM DAILY; 0.266 MG 1 PER MONTH; DOSAGE USED: 1 PER MONTH
     Route: 065
     Dates: start: 2021
  21. LIRAGLUTIDE [Concomitant]
     Active Substance: LIRAGLUTIDE
     Indication: Diabetes mellitus
     Dosage: 6 MG/ML PRESCRIBED REGIMEN: 1 EVERY 7 DAYS; USED REGIMEN: 1 EVERY 7 DAYS
     Route: 065
     Dates: start: 2010
  22. LIRAGLUTIDE [Concomitant]
     Active Substance: LIRAGLUTIDE
     Indication: Hypertension
     Dosage: 6 MG/ML PRESCRIBED REGIMEN: 1 EVERY 7 DAYS; USED REGIMEN: 1 EVERY 7 DAYS
     Route: 065
     Dates: start: 2010
  23. LIRAGLUTIDE [Concomitant]
     Active Substance: LIRAGLUTIDE
     Dosage: 6 MG/ML PRESCRIBED REGIMEN: 1 EVERY 7 DAYS; USED REGIMEN: 1 EVERY 7 DAYS
     Route: 065
     Dates: start: 2010
  24. ATORVASTATIN [Concomitant]
     Active Substance: ATORVASTATIN
     Indication: Hypercholesterolaemia
     Dosage: 40 MG DOSAGE PRESCRIBED: 0-0-1-0 DOSAGE USED: 0-0-1-0-0
     Route: 065
     Dates: start: 2015
  25. PANTOPRAZOLE [Concomitant]
     Active Substance: PANTOPRAZOLE
     Indication: Gastrooesophageal reflux disease
     Dosage: 40 MG DOSAGE PRESCRIBED: 1-0-0-0; USED DOSAGE: 1-0-0-0-0
     Route: 065
     Dates: start: 2016
  26. ACETAMINOPHEN\TRAMADOL [Concomitant]
     Active Substance: ACETAMINOPHEN\TRAMADOL
     Indication: Arthralgia
     Dosage: 75 MG/650 MG, 3 TIMES A DAY
     Route: 065
     Dates: start: 2019
  27. CLOPIDOGREL [Concomitant]
     Active Substance: CLOPIDOGREL BISULFATE
     Indication: Cerebrovascular accident
     Dosage: 75 MG DOSAGE PRESCRIBED: 0-1-0-0-0; DOSAGE USED: 0-1-0-0-0
     Route: 065
     Dates: start: 2018
  28. CLOPIDOGREL [Concomitant]
     Active Substance: CLOPIDOGREL BISULFATE
     Indication: Cerebrovascular accident prophylaxis
     Dosage: (0-1-0-0)
     Route: 065
     Dates: start: 2018
  29. ACETAMINOPHEN [Concomitant]
     Active Substance: ACETAMINOPHEN
     Indication: Arthralgia
     Dosage: 650 MG PRESCRIBED: 1-1-1-0; USED: 1-1-1-0/1 DF 1 DAY
     Route: 065
     Dates: start: 2019
  30. EMPAGLIFLOZIN [Concomitant]
     Active Substance: EMPAGLIFLOZIN
     Indication: Hypertension
     Dosage: 1000 MG/5 MG (1-0-1-0), TWO TIMES A DAY
     Route: 065
  31. EMPAGLIFLOZIN [Concomitant]
     Active Substance: EMPAGLIFLOZIN
     Dosage: 1000 MG/5 MG (1-0-1-0), TWO TIMES A DAY
     Route: 065
     Dates: start: 2010
  32. VORTIOXETINE [Concomitant]
     Active Substance: VORTIOXETINE
     Indication: Personality disorder
     Dosage: 15 MG; PRESCRIPTION: 1-0-0-0; USED PATTERN: 1-0-0-0-0
     Route: 065
  33. VORTIOXETINE [Concomitant]
     Active Substance: VORTIOXETINE
     Dosage: 15 MG; PRESCRIPTION: 1-0-0-0; USED PATTERN: 1-0-0-0-0
     Route: 065
  34. GLYCOPYRRONIUM\INDACATEROL [Concomitant]
     Active Substance: GLYCOPYRRONIUM\INDACATEROL
     Indication: Chronic obstructive pulmonary disease
     Dosage: 85 UG/43 UG (1 UD/24H)
     Route: 065
     Dates: start: 2016
  35. GLYCOPYRRONIUM\INDACATEROL [Concomitant]
     Active Substance: GLYCOPYRRONIUM\INDACATEROL
     Indication: Chronic obstructive pulmonary disease
     Dosage: 85 UG/43 UG (1 UD/24H)
     Route: 065
     Dates: start: 2016
  36. TRAMADOL [Concomitant]
     Active Substance: TRAMADOL\TRAMADOL HYDROCHLORIDE
     Indication: Arthralgia
     Dosage: 100 MG/ML; DOSAGE PRESCRIBED: ON-DEMAND DOSAGE USED: ON-DEMAND
     Route: 065
     Dates: start: 2019
  37. EMPAGLIFLOZIN\METFORMIN HYDROCHLORIDE [Concomitant]
     Active Substance: EMPAGLIFLOZIN\METFORMIN HYDROCHLORIDE
     Indication: Diabetes mellitus
     Dosage: 1000 MG/5 MG (1-0-1-0), TWO TIMES A DAY
     Route: 065
  38. EMPAGLIFLOZIN\METFORMIN HYDROCHLORIDE [Concomitant]
     Active Substance: EMPAGLIFLOZIN\METFORMIN HYDROCHLORIDE
     Dosage: 1000 MG/5 MG (1-0-1-0), TWO TIMES A DAY
     Route: 065
     Dates: start: 2010

REACTIONS (8)
  - Hypotension [Recovered/Resolved]
  - Hallucination [Recovered/Resolved]
  - Parkinsonism [Recovered/Resolved]
  - Hypoglycaemia [Recovered/Resolved]
  - Somnolence [Recovered/Resolved]
  - Somnolence [Recovered/Resolved]
  - Tachycardia [Recovered/Resolved]
  - Hyperhidrosis [Recovered/Resolved]
